FAERS Safety Report 9404458 (Version 2)
Quarter: 2013Q3

REPORT INFORMATION
  Report Type: Spontaneous
  Country: US (occurrence: None)
  Receive Date: 20130715
  Receipt Date: 20130722
  Transmission Date: 20140515
  Serious: Yes (Hospitalization)
  Sender: FDA-Public Use
  Company Number: 2013-1150

PATIENT
  Age: 64 Year
  Sex: Male

DRUGS (8)
  1. KYPROLIS (CARFILZOMIB) (INJECTION FOR INFUSION) (CARFILZOMIB) [Suspect]
     Indication: PLASMA CELL MYELOMA
     Dosage: 45MG, 2 IN 1 WK INTRAVENOUS
     Route: 042
  2. MEVACOR (LOVASTATIN) (LOVASTATIN) [Concomitant]
  3. MOBIC (MELOXICAM) (MELOXICAM) [Concomitant]
  4. DEXAMETHASONE (DEXAMETHASONE) (DESAMETHASONE) [Concomitant]
  5. LASIX (FUROSEMIDE) (FUROSEMIDE) [Concomitant]
  6. KLONOPIN [Concomitant]
  7. PRILOSEC (OMEPRAZOLE) (OMEPRAZOLE) [Concomitant]
  8. WARFARIN (WARFARIN) (WARFARIN) [Concomitant]

REACTIONS (5)
  - Blood potassium increased [None]
  - Blood magnesium increased [None]
  - Haematocrit increased [None]
  - Headache [None]
  - Bacteraemia [None]
